FAERS Safety Report 9836764 (Version 2)
Quarter: 2014Q1

REPORT INFORMATION
  Report Type: Spontaneous
  Country: US (occurrence: US)
  Receive Date: 20140123
  Receipt Date: 20140224
  Transmission Date: 20141002
  Serious: No
  Sender: FDA-Public Use
  Company Number: US-PFIZER INC-2014015469

PATIENT
  Age: 70 Year
  Sex: Female

DRUGS (4)
  1. CELEBREX [Suspect]
     Indication: OSTEOARTHRITIS
     Dosage: UNKNOWN
     Route: 048
  2. CELEBREX [Suspect]
     Indication: OSTEOPENIA
     Dosage: 100 MG, ONE ON MONDAY, WEDNESDAY AND FRIDAY
  3. CELEBREX [Suspect]
     Indication: OSTEOPOROSIS
  4. GLUCOSAMINE HCL [Suspect]
     Dosage: 1500 MG, 2X/DAY

REACTIONS (2)
  - Treatment noncompliance [Unknown]
  - Hypertension [Unknown]
